FAERS Safety Report 18182392 (Version 1)
Quarter: 2020Q3

REPORT INFORMATION
  Report Type: Spontaneous
  Country: FR (occurrence: FR)
  Receive Date: 20200821
  Receipt Date: 20200821
  Transmission Date: 20201103
  Serious: Yes (Hospitalization, Other)
  Sender: FDA-Public Use
  Company Number: FR-GILEAD-2020-0491442

PATIENT
  Age: 65 Year
  Sex: Male
  Weight: 96 kg

DRUGS (14)
  1. JANUVIA [Concomitant]
     Active Substance: SITAGLIPTIN PHOSPHATE
     Route: 048
  2. LINEZOLIDE [Concomitant]
     Active Substance: LINEZOLID
     Route: 042
  3. NOXAFIL [Concomitant]
     Active Substance: POSACONAZOLE
     Route: 048
  4. OMEPRAZOLE. [Concomitant]
     Active Substance: OMEPRAZOLE
     Route: 042
  5. BACTRIM [Concomitant]
     Active Substance: SULFAMETHOXAZOLE\TRIMETHOPRIM
     Route: 048
  6. BINOCRIT [Concomitant]
     Active Substance: ERYTHROPOIETIN
     Route: 042
  7. CEFTAZIDIME. [Concomitant]
     Active Substance: CEFTAZIDIME
     Route: 042
  8. VANCOMYCINE [VANCOMYCIN] [Concomitant]
     Active Substance: VANCOMYCIN
     Route: 042
  9. FOLINATE DE CALCIUM [Concomitant]
     Active Substance: LEUCOVORIN CALCIUM
     Route: 042
  10. LEVETIRACETAM. [Concomitant]
     Active Substance: LEVETIRACETAM
     Route: 042
  11. ACICLOVIR [Concomitant]
     Active Substance: ACYCLOVIR
     Route: 042
  12. YESCARTA [Suspect]
     Active Substance: AXICABTAGENE CILOLEUCEL
     Indication: B-CELL LYMPHOMA
     Dosage: CART = 52% DES LCT DE LA POCHE)
     Route: 042
     Dates: start: 20200602, end: 20200602
  13. MALOCIDE [Concomitant]
     Route: 048
  14. HEPARINE [HEPARIN] [Concomitant]
     Active Substance: HEPARIN SODIUM
     Route: 042

REACTIONS (2)
  - Immune effector cell-associated neurotoxicity syndrome [Recovered/Resolved]
  - Cytokine release syndrome [Recovered/Resolved]

NARRATIVE: CASE EVENT DATE: 20200603
